FAERS Safety Report 4832036-0 (Version None)
Quarter: 2005Q4

REPORT INFORMATION
  Report Type: 
  Country: None (occurrence: None)
  Receive Date: 20051116
  Receipt Date: 20051110
  Transmission Date: 20060501
  Serious: Yes (Other)
  Sender: FDA-Public Use
  Company Number: THQ2005A00955

PATIENT
  Age: 53 Year
  Sex: Male

DRUGS (7)
  1. ACTOS [Suspect]
     Indication: DIABETES MELLITUS
     Dosage: PER ORAL
     Route: 048
  2. LIPITOR [Concomitant]
  3. CONVERSYL (PERINDOPRIL) [Suspect]
  4. NORVASC [Concomitant]
  5. VALPROATE SODIUM [Concomitant]
  6. MOTILIUM (DOMPERIDONE MALEATE) [Concomitant]
  7. PREPULSID (CISAPORIDE) [Concomitant]

REACTIONS (1)
  - HYPERSOMNIA [None]
